FAERS Safety Report 16143549 (Version 2)
Quarter: 2019Q2

REPORT INFORMATION
  Report Type: Spontaneous
  Country: US (occurrence: US)
  Receive Date: 20190401
  Receipt Date: 20190509
  Transmission Date: 20190711
  Serious: Yes (Hospitalization, Other)
  Sender: FDA-Public Use
  Company Number: US-PFIZER INC-2019126365

PATIENT
  Age: 53 Year
  Sex: Male
  Weight: 117.9 kg

DRUGS (7)
  1. OMEGA-3-ACID ETHYL ESTER [Concomitant]
     Active Substance: OMEGA-3-ACID ETHYL ESTERS
     Indication: BLOOD CHOLESTEROL
     Dosage: 46 MG, DAILY
  2. VALSARTAN. [Concomitant]
     Active Substance: VALSARTAN
     Indication: BLOOD PRESSURE MEASUREMENT
     Dosage: 25 MG, 1X/DAY
  3. OMEPRAZOLE. [Concomitant]
     Active Substance: OMEPRAZOLE
     Indication: GASTROOESOPHAGEAL REFLUX DISEASE
     Dosage: 20 MG, 1X/DAY
  4. CELEBREX [Suspect]
     Active Substance: CELECOXIB
     Indication: ARTHRITIS
     Dosage: 200 MG, 1X/DAY
     Route: 048
     Dates: start: 20190208, end: 20190301
  5. CELEBREX [Interacting]
     Active Substance: CELECOXIB
     Indication: INTERVERTEBRAL DISC PROTRUSION
  6. ATORVASTATIN [Concomitant]
     Active Substance: ATORVASTATIN
     Indication: BLOOD CHOLESTEROL INCREASED
     Dosage: 20 MG, 1X/DAY
  7. CELEBREX [Interacting]
     Active Substance: CELECOXIB
     Indication: BACK PAIN

REACTIONS (6)
  - Blood pressure increased [Recovered/Resolved]
  - Hypersomnia [Recovered/Resolved]
  - Drug interaction [Recovered/Resolved]
  - Vertigo [Not Recovered/Not Resolved]
  - Tinnitus [Recovering/Resolving]
  - Nausea [Recovering/Resolving]

NARRATIVE: CASE EVENT DATE: 20190225
